FAERS Safety Report 18705209 (Version 2)
Quarter: 2021Q1

REPORT INFORMATION
  Report Type: Spontaneous
  Country: DE (occurrence: DE)
  Receive Date: 20210106
  Receipt Date: 20210206
  Transmission Date: 20210419
  Serious: Yes (Life-Threatening, Hospitalization, Other)
  Sender: FDA-Public Use
  Company Number: DE-AMGEN-DEUSP2020212452

PATIENT
  Age: 47 Year
  Sex: Female

DRUGS (7)
  1. DARATUMUMAB [Concomitant]
     Active Substance: DARATUMUMAB
     Indication: PLASMA CELL MYELOMA
     Dosage: UNK
     Route: 065
     Dates: start: 20200728
  2. CISPLATIN. [Concomitant]
     Active Substance: CISPLATIN
     Indication: PLASMA CELL MYELOMA
     Dosage: UNK
     Route: 065
     Dates: start: 20200728
  3. CARFILZOMIB [Suspect]
     Active Substance: CARFILZOMIB
     Indication: PLASMA CELL MYELOMA
     Dosage: 56 MILLIGRAM/SQ. METER
     Route: 065
     Dates: start: 20200715, end: 20200716
  4. BORTEZOMIB. [Concomitant]
     Active Substance: BORTEZOMIB
     Indication: PLASMA CELL MYELOMA
     Dosage: UNK
     Route: 065
     Dates: start: 20200728
  5. MELPHALAN. [Concomitant]
     Active Substance: MELPHALAN
     Indication: PLASMA CELL MYELOMA
     Dosage: 100 MILLIGRAM/SQ. METER
     Route: 042
     Dates: start: 20200819
  6. ETOPOSIDE. [Concomitant]
     Active Substance: ETOPOSIDE
     Indication: PLASMA CELL MYELOMA
     Dosage: UNK
     Route: 065
     Dates: start: 20200728
  7. CYCLOPHOSPHAMIDE. [Concomitant]
     Active Substance: CYCLOPHOSPHAMIDE
     Indication: PLASMA CELL MYELOMA
     Dosage: UNK
     Route: 065
     Dates: start: 20200728

REACTIONS (8)
  - Pneumonia bacterial [Recovered/Resolved]
  - Cardiac failure [Recovered/Resolved]
  - Urinary tract infection enterococcal [Unknown]
  - Acute kidney injury [Recovered/Resolved]
  - Pneumonitis [Recovered/Resolved]
  - Sepsis [Recovered/Resolved]
  - Plasma cell myeloma [Recovering/Resolving]
  - Tumour lysis syndrome [Unknown]

NARRATIVE: CASE EVENT DATE: 2020
